FAERS Safety Report 9030279 (Version 1)
Quarter: 2013Q1

REPORT INFORMATION
  Report Type: Spontaneous
  Country: FR (occurrence: FR)
  Receive Date: 20130122
  Receipt Date: 20130122
  Transmission Date: 20140127
  Serious: Yes (Congenital Anomaly)
  Sender: FDA-Public Use
  Company Number: FR-ROCHE-1178536

PATIENT
  Sex: 0

DRUGS (7)
  1. RIVOTRIL [Suspect]
     Indication: PRODUCT USED FOR UNKNOWN INDICATION
     Route: 065
  2. LIORESAL [Suspect]
     Indication: PRODUCT USED FOR UNKNOWN INDICATION
     Route: 064
  3. DITROPAN [Suspect]
     Indication: PRODUCT USED FOR UNKNOWN INDICATION
     Route: 064
  4. ATHYMIL [Suspect]
     Indication: PRODUCT USED FOR UNKNOWN INDICATION
     Route: 064
  5. MINIRIN [Suspect]
     Indication: PRODUCT USED FOR UNKNOWN INDICATION
     Dosage: 2 INHALATION DAILY
     Route: 064
  6. CANNABIS [Suspect]
     Indication: PRODUCT USED FOR UNKNOWN INDICATION
     Route: 064
  7. EDUCTYL [Concomitant]

REACTIONS (4)
  - Congenital nose malformation [Recovered/Resolved]
  - Congenital central nervous system anomaly [Recovered/Resolved with Sequelae]
  - Withdrawal syndrome [Recovered/Resolved]
  - Maternal exposure timing unspecified [Unknown]
